FAERS Safety Report 24825462 (Version 1)
Quarter: 2025Q1

REPORT INFORMATION
  Report Type: Spontaneous
  Country: CN (occurrence: CN)
  Receive Date: 20250109
  Receipt Date: 20250109
  Transmission Date: 20250408
  Serious: Yes (Death)
  Sender: PFIZER
  Company Number: CN-MLMSERVICE-20241226-PI316699-00182-5

PATIENT
  Age: 61 Year
  Sex: Male

DRUGS (23)
  1. IRINOTECAN HYDROCHLORIDE [Suspect]
     Active Substance: IRINOTECAN HYDROCHLORIDE
     Indication: Non-small cell lung cancer stage II
     Route: 042
     Dates: start: 202301
  2. IRINOTECAN HYDROCHLORIDE [Suspect]
     Active Substance: IRINOTECAN HYDROCHLORIDE
     Route: 042
     Dates: start: 202302
  3. IRINOTECAN HYDROCHLORIDE [Suspect]
     Active Substance: IRINOTECAN HYDROCHLORIDE
     Route: 042
     Dates: start: 202303
  4. IRINOTECAN HYDROCHLORIDE [Suspect]
     Active Substance: IRINOTECAN HYDROCHLORIDE
     Route: 042
     Dates: start: 202305
  5. IRINOTECAN HYDROCHLORIDE [Suspect]
     Active Substance: IRINOTECAN HYDROCHLORIDE
     Route: 042
     Dates: start: 202308
  6. CARBOPLATIN [Suspect]
     Active Substance: CARBOPLATIN
     Indication: Non-small cell lung cancer stage II
     Route: 042
     Dates: start: 202303
  7. CARBOPLATIN [Suspect]
     Active Substance: CARBOPLATIN
     Route: 042
     Dates: start: 202303
  8. CISPLATIN [Suspect]
     Active Substance: CISPLATIN
     Indication: Non-small cell lung cancer stage II
     Route: 042
     Dates: start: 202301
  9. CISPLATIN [Suspect]
     Active Substance: CISPLATIN
     Route: 042
     Dates: start: 202301
  10. CISPLATIN [Suspect]
     Active Substance: CISPLATIN
     Route: 042
     Dates: start: 202302
  11. CISPLATIN [Suspect]
     Active Substance: CISPLATIN
     Route: 042
     Dates: start: 202302
  12. CISPLATIN [Suspect]
     Active Substance: CISPLATIN
     Route: 042
     Dates: start: 202305
  13. CISPLATIN [Suspect]
     Active Substance: CISPLATIN
     Route: 042
     Dates: start: 202308
  14. SERPLULIMAB [Suspect]
     Active Substance: SERPLULIMAB
     Indication: Non-small cell lung cancer stage II
     Route: 042
     Dates: start: 202301
  15. SERPLULIMAB [Suspect]
     Active Substance: SERPLULIMAB
     Route: 042
     Dates: start: 202302
  16. SERPLULIMAB [Suspect]
     Active Substance: SERPLULIMAB
     Route: 042
     Dates: start: 202303, end: 2023
  17. SERPLULIMAB [Suspect]
     Active Substance: SERPLULIMAB
     Route: 042
     Dates: start: 202305
  18. SERPLULIMAB [Suspect]
     Active Substance: SERPLULIMAB
     Route: 042
     Dates: start: 202308
  19. TRILACICLIB [Suspect]
     Active Substance: TRILACICLIB
     Indication: Bone marrow conditioning regimen
     Route: 042
     Dates: start: 202303
  20. TRILACICLIB [Suspect]
     Active Substance: TRILACICLIB
     Route: 042
     Dates: start: 202305
  21. TRILACICLIB [Suspect]
     Active Substance: TRILACICLIB
     Route: 042
     Dates: start: 202308
  22. OCTREOTIDE [Concomitant]
     Active Substance: OCTREOTIDE
     Indication: Cushing^s syndrome
  23. MIFEPRISTONE [Concomitant]
     Active Substance: MIFEPRISTONE
     Indication: Cushing^s syndrome

REACTIONS (4)
  - Cardiac failure acute [Fatal]
  - Klebsiella infection [Fatal]
  - Myelosuppression [Fatal]
  - Respiratory failure [Fatal]

NARRATIVE: CASE EVENT DATE: 20230101
